FAERS Safety Report 7244381-2 (Version None)
Quarter: 2011Q1

REPORT INFORMATION
  Report Type: 
  Country: None (occurrence: None)
  Receive Date: 20110125
  Receipt Date: 20110124
  Transmission Date: 20110831
  Serious: Yes (Hospitalization)
  Sender: FDA-Public Use
  Company Number: US-B.I. PHARMACEUTICALS,INC./RIDGEFIELD-2010-BP-14995BP

PATIENT
  Sex: Female

DRUGS (14)
  1. NEXIUM [Concomitant]
     Indication: GASTROOESOPHAGEAL REFLUX DISEASE
     Dosage: 40 MG
  2. INSULIN PUMP [Concomitant]
     Indication: DIABETES MELLITUS
  3. AMLODIPINE [Concomitant]
     Indication: HYPERTENSION
  4. PREDNISONE TAB [Concomitant]
     Indication: RENAL TRANSPLANT
     Dosage: 5 MG
  5. CYCLOSPORINE [Concomitant]
     Indication: RENAL TRANSPLANT
  6. NEORAL [Concomitant]
     Dosage: 200 MG
  7. LOPRESSOR [Concomitant]
     Indication: ATRIAL FIBRILLATION
     Dosage: 150 MG
  8. LISINOPRIL [Concomitant]
     Indication: HYPERTENSION
     Dosage: 40 MG
  9. LOSARTAN POTASSIUM [Concomitant]
     Indication: HYPERTENSION
     Dosage: 50 MG
  10. PRADAXA [Suspect]
     Indication: ATRIAL FIBRILLATION
     Dosage: 300 MG
     Route: 048
     Dates: start: 20101208, end: 20101212
  11. CELLCEPT [Concomitant]
     Indication: RENAL TRANSPLANT
     Dosage: 1000 MG
  12. LIPITOR [Concomitant]
     Indication: PROPHYLAXIS
     Dosage: 10 MG
  13. CLONIDINE [Concomitant]
     Indication: HYPERTENSION
  14. COTRIM [Concomitant]

REACTIONS (3)
  - HAEMATOCRIT DECREASED [None]
  - GINGIVAL BLEEDING [None]
  - TOOTH ABSCESS [None]
